FAERS Safety Report 10733442 (Version 1)
Quarter: 2015Q1

REPORT INFORMATION
  Report Type: Report from Study
  Country: BR (occurrence: BR)
  Receive Date: 20150123
  Receipt Date: 20150123
  Transmission Date: 20150721
  Serious: Yes (Death, Hospitalization, Other)
  Sender: FDA-Public Use
  Company Number: BR-SA-2015SA007568

PATIENT
  Sex: Male

DRUGS (1)
  1. LANTUS [Suspect]
     Active Substance: INSULIN GLARGINE
     Indication: DIABETES MELLITUS
     Dosage: 3 ML CARTRIDGE
     Route: 058
     Dates: end: 20140522

REACTIONS (5)
  - Hemiparesis [Unknown]
  - Coma [Unknown]
  - Cerebral haemorrhage [Unknown]
  - Unevaluable event [Fatal]
  - Pulmonary oedema [Unknown]
